FAERS Safety Report 7504696-7 (Version None)
Quarter: 2011Q2

REPORT INFORMATION
  Report Type: 
  Country: None (occurrence: None)
  Receive Date: 20110525
  Receipt Date: 20110518
  Transmission Date: 20111010
  Serious: Yes (Hospitalization, Other)
  Sender: FDA-Public Use
  Company Number: US-MERCK-1104USA01353

PATIENT
  Age: 73 Year
  Sex: Female

DRUGS (2)
  1. SYNTHROID [Concomitant]
     Indication: HYPOTHYROIDISM
     Route: 065
     Dates: start: 19900101
  2. FOSAMAX [Suspect]
     Indication: OSTEOPOROSIS PROPHYLAXIS
     Route: 048
     Dates: start: 19950101, end: 20081201

REACTIONS (22)
  - GASTROOESOPHAGEAL REFLUX DISEASE [None]
  - HIATUS HERNIA [None]
  - MOUTH ULCERATION [None]
  - EYE DISORDER [None]
  - BONE LOSS [None]
  - MACULAR DEGENERATION [None]
  - OSTEONECROSIS OF JAW [None]
  - STOMATITIS [None]
  - DIVERTICULUM [None]
  - DENTAL CARIES [None]
  - EXOSTOSIS [None]
  - PERIODONTAL DISEASE [None]
  - ORAL INFECTION [None]
  - BLOOD CHOLESTEROL INCREASED [None]
  - IMPAIRED HEALING [None]
  - GLAUCOMA [None]
  - DEPRESSION [None]
  - BREAST CANCER [None]
  - INTERVERTEBRAL DISC DEGENERATION [None]
  - DIABETES MELLITUS [None]
  - ABSCESS [None]
  - OSTEOARTHRITIS [None]
